FAERS Safety Report 7100002-0 (Version None)
Quarter: 2010Q4

REPORT INFORMATION
  Report Type: 
  Country: None (occurrence: None)
  Receive Date: 20101112
  Receipt Date: 20100820
  Transmission Date: 20110411
  Serious: No
  Sender: FDA-Public Use
  Company Number: US-BAYER-201031461NA

PATIENT
  Age: 34 Year
  Sex: Female
  Weight: 45 kg

DRUGS (1)
  1. ULTRAVIST 300 [Suspect]
     Indication: COMPUTERISED TOMOGRAM ABDOMEN
     Dosage: 100CC/300MG/ML, RIGHT ANTECUBITAL USING A POWER INJECTOR AT A RATE OF 0.5 CC.?EC
     Route: 042
     Dates: start: 20100819, end: 20100819

REACTIONS (1)
  - URTICARIA [None]
